FAERS Safety Report 4707219-0 (Version None)
Quarter: 2005Q2

REPORT INFORMATION
  Report Type: 
  Country: None (occurrence: None)
  Receive Date: 20050630
  Receipt Date: 20050614
  Transmission Date: 20051028
  Serious: Yes (Hospitalization)
  Sender: FDA-Public Use
  Company Number: MPS1-10383

PATIENT
  Age: 34 Month
  Sex: Female
  Weight: 31.2 kg

DRUGS (1)
  1. ALDURAZYME [Suspect]
     Indication: MUCOPOLYSACCHARIDOSIS I
     Dosage: 8.7 MG QWK IV
     Route: 042
     Dates: start: 20040426

REACTIONS (3)
  - ASTHENIA [None]
  - DYSPNOEA [None]
  - HYDROCEPHALUS [None]
